FAERS Safety Report 11501680 (Version 1)
Quarter: 2015Q3

REPORT INFORMATION
  Report Type: Spontaneous
  Country: IE (occurrence: IE)
  Receive Date: 20150914
  Receipt Date: 20150914
  Transmission Date: 20151125
  Serious: Yes (Other)
  Sender: FDA-Public Use
  Company Number: IE-GLAXOSMITHKLINE-IE2015GSK059401

PATIENT
  Age: 16 Year
  Sex: Female

DRUGS (2)
  1. ZOVIRAX [Suspect]
     Active Substance: ACYCLOVIR
     Indication: PROPHYLAXIS
     Dosage: 10 MG/KG, UNK
     Route: 042
     Dates: start: 20150421
  2. CHEMOTHERAPY [Concomitant]
     Active Substance: UNSPECIFIED INGREDIENT

REACTIONS (4)
  - Blood creatinine increased [Recovering/Resolving]
  - Polyuria [Unknown]
  - Diabetes insipidus [Unknown]
  - Polydipsia [Unknown]

NARRATIVE: CASE EVENT DATE: 201504
